FAERS Safety Report 5432996-3 (Version None)
Quarter: 2007Q3

REPORT INFORMATION
  Report Type: 
  Country: None (occurrence: None)
  Receive Date: 20070831
  Receipt Date: 20070823
  Transmission Date: 20080115
  Serious: Yes (Hospitalization)
  Sender: FDA-Public Use
  Company Number: PHHO2007JP14099

PATIENT
  Age: 66 Year
  Sex: Female
  Weight: 35 kg

DRUGS (9)
  1. NEORAL [Concomitant]
     Indication: RENAL TRANSPLANT
     Dosage: 250 MG/DAILY
     Route: 048
     Dates: start: 20070208
  2. MEDROL [Concomitant]
     Indication: RENAL TRANSPLANT
     Dosage: 20 MG/DAILY
     Dates: start: 20070210
  3. MEDROL [Concomitant]
     Dosage: 20 MG/DAILY
     Dates: start: 20070210
  4. SIMULECT [Suspect]
     Indication: RENAL TRANSPLANT
     Dosage: 20 MG, DAY 0
     Route: 042
     Dates: start: 20070131, end: 20070131
  5. SIMULECT [Suspect]
     Dosage: 20 MG, DAY 4
     Route: 042
     Dates: start: 20070204, end: 20070204
  6. SANDIMMUNE [Suspect]
     Indication: RENAL TRANSPLANT
     Dosage: 60 MG/DAILY
     Route: 042
     Dates: start: 20070131
  7. CELLCEPT [Suspect]
     Indication: RENAL TRANSPLANT
     Dosage: 1000 MG/DAILY
     Route: 048
     Dates: start: 20070201
  8. SOLU-MEDROL [Suspect]
     Indication: RENAL TRANSPLANT
     Dosage: 500 MG/DAILY
     Route: 042
     Dates: start: 20070131
  9. AMLODIPINE [Concomitant]
     Indication: HYPERTENSION
     Dosage: 2.5 MG/DAILY
     Dates: start: 20000331

REACTIONS (1)
  - HAEMOLYTIC ANAEMIA [None]
